FAERS Safety Report 7206332 (Version 3)
Quarter: 2012Q4

REPORT INFORMATION
  Report Type: 
  Country: US (occurrence: US)
  Receive Date: 20091209
  Receipt Date: 20121115
  Transmission Date: 20130627
  Serious: Yes (Hospitalization)
  Sender: FDA-Public Use
  Company Number: US-BIOGENIDEC-2009BI039670

PATIENT
  Age: 49 Year
  Sex: Female

DRUGS (1)
  1. AVONEX [Suspect]
     Indication: MULTIPLE SCLEROSIS
     Route: 030
     Dates: start: 20041012, end: 201106

REACTIONS (3)
  - Uterine leiomyoma [Recovered/Resolved]
  - Knee arthroplasty [Recovered/Resolved]
  - Arthralgia [Recovered/Resolved]
